FAERS Safety Report 5170245-4 (Version None)
Quarter: 2006Q4

REPORT INFORMATION
  Report Type: 
  Country: None (occurrence: None)
  Receive Date: 20061204
  Receipt Date: 20061124
  Transmission Date: 20070319
  Serious: Yes (Death, Hospitalization)
  Sender: FDA-Public Use
  Company Number: PAR_1129_2006

PATIENT
  Age: 75 Year
  Sex: Male

DRUGS (7)
  1. ISOPTIN [Suspect]
     Indication: TACHYCARDIA
     Dosage: 360 MG QDAY PO
     Route: 048
     Dates: start: 20061001, end: 20061012
  2. ISOPTIN [Suspect]
     Indication: TACHYCARDIA
     Dosage: 120 MG BID PO
     Route: 048
     Dates: start: 20061004, end: 20061001
  3. ISOPTIN [Suspect]
     Indication: TACHYCARDIA
     Dosage: 40 MG TID PO
     Route: 048
     Dates: start: 20060928, end: 20061004
  4. SOTALOL HYDROCHLORIDE [Suspect]
     Indication: TACHYCARDIA
     Dosage: 160 MG QDAY PO
     Route: 048
     Dates: start: 20061012, end: 20061012
  5. SOTALOL HYDROCHLORIDE [Suspect]
     Indication: TACHYCARDIA
     Dosage: 160 MG QDAY PO
     Route: 048
     Dates: start: 20060928, end: 20061004
  6. SOTALOL HYDROCHLORIDE [Suspect]
     Indication: TACHYCARDIA
     Dosage: 120 MG BID PO
     Route: 048
     Dates: start: 20060101, end: 20060928
  7. SOTALOL HYDROCHLORIDE [Suspect]
     Indication: TACHYCARDIA
     Dosage: 80 MG BID PO
     Route: 048
     Dates: start: 20060101, end: 20060101

REACTIONS (4)
  - BRADYCARDIA [None]
  - CARDIAC ARREST [None]
  - CONFUSIONAL STATE [None]
  - DRUG INTERACTION [None]
